FAERS Safety Report 7080099-7 (Version None)
Quarter: 2010Q4

REPORT INFORMATION
  Report Type: 
  Country: None (occurrence: None)
  Receive Date: 20101102
  Receipt Date: 20101029
  Transmission Date: 20110411
  Serious: Yes (Hospitalization)
  Sender: FDA-Public Use
  Company Number: GB-MERCK-1011GBR00004

PATIENT
  Age: 54 Year
  Sex: Male
  Weight: 89 kg

DRUGS (10)
  1. JANUVIA [Suspect]
     Indication: TYPE 2 DIABETES MELLITUS
     Route: 048
     Dates: start: 20100701, end: 20100813
  2. ASPIRIN [Concomitant]
     Route: 065
  3. DICLOFENAC [Concomitant]
     Route: 065
  4. GABAPENTIN [Concomitant]
     Route: 065
  5. LACTULOSE [Concomitant]
     Route: 065
  6. ALBUTEROL [Concomitant]
     Route: 065
  7. SIMVASTATIN [Concomitant]
     Route: 048
  8. TADALAFIL [Concomitant]
     Route: 065
  9. TRAMADOL HYDROCHLORIDE [Concomitant]
     Route: 048
  10. TRAZODONE HYDROCHLORIDE [Concomitant]
     Route: 065

REACTIONS (2)
  - HEPATITIS [None]
  - JAUNDICE [None]
